FAERS Safety Report 9632152 (Version 1)
Quarter: 2013Q4

REPORT INFORMATION
  Report Type: Spontaneous
  Country: US (occurrence: None)
  Receive Date: 20131017
  Receipt Date: 20131017
  Transmission Date: 20140711
  Serious: Yes (Other)
  Sender: FDA-Public Use
  Company Number: None

PATIENT
  Sex: 0
  Weight: 136.08 kg

DRUGS (2)
  1. FENTANYL [Suspect]
     Indication: BACK PAIN
     Route: 062
     Dates: start: 20130923, end: 20131002
  2. FENTANYL [Suspect]
     Indication: BACK PAIN
     Route: 062
     Dates: start: 20130923, end: 20131002

REACTIONS (2)
  - Application site rash [None]
  - No therapeutic response [None]
